FAERS Safety Report 12403712 (Version 2)
Quarter: 2016Q2

REPORT INFORMATION
  Report Type: Spontaneous
  Country: SI (occurrence: SI)
  Receive Date: 20160525
  Receipt Date: 20160526
  Transmission Date: 20160815
  Serious: Yes (Hospitalization)
  Sender: FDA-Public Use
  Company Number: SI-009507513-1605SVN010956

PATIENT
  Age: 54 Year
  Sex: Male

DRUGS (8)
  1. ZERBAXA [Suspect]
     Active Substance: CEFTOLOZANE SULFATE\TAZOBACTAM SODIUM
     Indication: SEPSIS
     Dosage: UNK
     Route: 042
     Dates: start: 20160304, end: 20160308
  2. ALDACTONE [Concomitant]
     Active Substance: SPIRONOLACTONE
     Route: 048
  3. ARTERENOL [Concomitant]
     Active Substance: NORADRENALINE HYDROCHLORIDE
     Dosage: 10 MG IN 50 ML 0.9% NACL 3 ML/H
     Route: 042
  4. EDEMID [Concomitant]
     Active Substance: FUROSEMIDE
     Dosage: 2X2 TBL.7DAY
     Route: 048
  5. CONCOR COR [Concomitant]
     Active Substance: BISOPROLOL FUMARATE
     Route: 048
  6. MAREVAN [Concomitant]
     Active Substance: WARFARIN SODIUM
     Dosage: 1.5 TBL./DAY AND 2 TBL./DAYAND 1.5TBL./DAY AND 2 TBL/DAY AND SO ON
     Route: 048
  7. TRITACE [Concomitant]
     Active Substance: RAMIPRIL
     Route: 048
  8. DOBUTAMINE [Concomitant]
     Active Substance: DOBUTAMINE\DOBUTAMINE HYDROCHLORIDE
     Dosage: 500MG IN 50 ML 0.9%, 9ML/H
     Route: 042

REACTIONS (3)
  - Hyperbilirubinaemia [Not Recovered/Not Resolved]
  - Liver injury [Not Recovered/Not Resolved]
  - Jaundice [Not Recovered/Not Resolved]

NARRATIVE: CASE EVENT DATE: 20160307
